FAERS Safety Report 23855750 (Version 1)
Quarter: 2024Q2

REPORT INFORMATION
  Report Type: Spontaneous
  Country: PT (occurrence: PT)
  Receive Date: 20240514
  Receipt Date: 20240514
  Transmission Date: 20240717
  Serious: Yes (Other)
  Sender: FDA-Public Use
  Company Number: PT-JNJFOC-20240525314

PATIENT
  Age: 60 Year
  Sex: Male

DRUGS (4)
  1. UPTRAVI [Suspect]
     Active Substance: SELEXIPAG
     Indication: Product used for unknown indication
     Route: 048
  2. TADALAFIL [Concomitant]
     Active Substance: TADALAFIL
  3. AMBRISENTAN [Concomitant]
     Active Substance: AMBRISENTAN
  4. TREPROSTINIL [Concomitant]
     Active Substance: TREPROSTINIL
     Route: 042

REACTIONS (2)
  - Angina pectoris [Not Recovered/Not Resolved]
  - Aortic stenosis [Unknown]
